FAERS Safety Report 21012140 (Version 9)
Quarter: 2024Q3

REPORT INFORMATION
  Report Type: Report from Study
  Country: CO (occurrence: CO)
  Receive Date: 20220627
  Receipt Date: 20240823
  Transmission Date: 20241017
  Serious: Yes (Hospitalization, Other)
  Sender: TAKEDA
  Company Number: CO-TAKEDA-2021TUS039492

PATIENT
  Age: 6 Year
  Sex: Female
  Weight: 21 kg

DRUGS (2)
  1. HUMAN IMMUNOGLOBULIN G\HYALURONIDASE RECOMBINANT HUMAN [Suspect]
     Active Substance: HUMAN IMMUNOGLOBULIN G\HYALURONIDASE (HUMAN RECOMBINANT)
     Indication: Primary immunodeficiency syndrome
     Dosage: 10 GRAM, MONTHLY
     Route: 058
  2. HUMAN IMMUNOGLOBULIN G\HYALURONIDASE RECOMBINANT HUMAN [Suspect]
     Active Substance: HUMAN IMMUNOGLOBULIN G\HYALURONIDASE (HUMAN RECOMBINANT)
     Indication: Combined immunodeficiency
     Dosage: 20 GRAM, MONTHLY
     Route: 058

REACTIONS (17)
  - Arthritis [Recovered/Resolved]
  - Klebsiella infection [Not Recovered/Not Resolved]
  - Urinary tract infection [Unknown]
  - Skin mass [Unknown]
  - Pyrexia [Unknown]
  - Insurance issue [Unknown]
  - Pain [Unknown]
  - Joint injury [Unknown]
  - Fall [Unknown]
  - Movement disorder [Unknown]
  - Weight increased [Unknown]
  - Product use issue [Unknown]
  - Product availability issue [Unknown]
  - Product dose omission issue [Unknown]
  - Diarrhoea [Not Recovered/Not Resolved]
  - Feeling hot [Unknown]
  - Erythema [Unknown]

NARRATIVE: CASE EVENT DATE: 20210615
